FAERS Safety Report 10018092 (Version 2)
Quarter: 2014Q1

REPORT INFORMATION
  Report Type: Spontaneous
  Country: US (occurrence: US)
  Receive Date: 20140318
  Receipt Date: 20140318
  Transmission Date: 20141002
  Serious: Yes (Hospitalization)
  Sender: FDA-Public Use
  Company Number: US-BRISTOL-MYERS SQUIBB COMPANY-18951160

PATIENT
  Age: 52 Year
  Sex: Male

DRUGS (13)
  1. ERBITUX [Suspect]
     Indication: COLORECTAL CANCER
     Dosage: RECEIVED 8 DOSES
     Route: 042
     Dates: start: 20130221, end: 20130418
  2. CAMPTOSAR [Suspect]
     Indication: COLORECTAL CANCER
     Route: 042
  3. BENADRYL [Suspect]
     Indication: PREMEDICATION
  4. ZOFRAN [Suspect]
     Indication: PREMEDICATION
  5. ATROPINE [Suspect]
     Indication: PREMEDICATION
  6. DECADRON [Suspect]
     Indication: PREMEDICATION
  7. HCTZ [Concomitant]
  8. PERCOCET [Concomitant]
     Dosage: 5/375
  9. MEGACE [Concomitant]
     Dosage: 400MG/10ML
  10. PROCHLORPERAZINE MALEATE [Concomitant]
  11. REGLAN [Concomitant]
  12. AMBIEN [Concomitant]
  13. MICARDIS [Concomitant]

REACTIONS (8)
  - Chest pain [Unknown]
  - Lacrimation increased [Unknown]
  - Erythema [Unknown]
  - Hyperhidrosis [Unknown]
  - Dyspnoea [Unknown]
  - Anxiety [Unknown]
  - Heart rate increased [Unknown]
  - Blood pressure increased [Unknown]
